FAERS Safety Report 9353349 (Version 1)
Quarter: 2013Q2

REPORT INFORMATION
  Report Type: Spontaneous
  Country: US (occurrence: None)
  Receive Date: 20130617
  Receipt Date: 20130617
  Transmission Date: 20140414
  Serious: Yes (Hospitalization)
  Sender: FDA-Public Use
  Company Number: None

PATIENT
  Age: 78 Year
  Sex: Male
  Weight: 60.7 kg

DRUGS (1)
  1. COBICISTAT/ELVITEGRAVIR/EMTRICITABINE/TENOFOVIR [Suspect]
     Dosage: 1 TAB  EVERY DAY  PO
     Route: 048
     Dates: start: 20130425, end: 20130506

REACTIONS (5)
  - Diarrhoea [None]
  - Hypotension [None]
  - Hyperkalaemia [None]
  - Chest discomfort [None]
  - Exercise tolerance decreased [None]
